FAERS Safety Report 17562132 (Version 6)
Quarter: 2022Q2

REPORT INFORMATION
  Report Type: Spontaneous
  Country: US (occurrence: US)
  Receive Date: 20200319
  Receipt Date: 20220525
  Transmission Date: 20220721
  Serious: Yes (Other)
  Sender: FDA-Public Use
  Company Number: NVSC2020US073302

PATIENT
  Age: 14 Month
  Sex: Female

DRUGS (1)
  1. KYMRIAH [Suspect]
     Active Substance: TISAGENLECLEUCEL
     Indication: Acute lymphocytic leukaemia
     Dosage: UNK, ONCE/SINGLE (3.3E6 CAR-POSITIVE T CELLS/KG BODY WEIGHT)
     Route: 042

REACTIONS (1)
  - Post-depletion B-cell recovery [Unknown]
